FAERS Safety Report 5289145-4 (Version None)
Quarter: 2007Q1

REPORT INFORMATION
  Report Type: 
  Country: None (occurrence: None)
  Receive Date: 20070116
  Receipt Date: 20060120
  Transmission Date: 20070707
  Serious: Yes (Hospitalization)
  Sender: FDA-Public Use
  Company Number: FEI2006-0105

PATIENT
  Age: 34 Year
  Sex: Female
  Weight: 75.7507 kg

DRUGS (2)
  1. INTRAUTERINE COPPER CONTRACEPTIVE [Suspect]
     Indication: CONTRACEPTION
     Dosage: INTRA-UTERINE
     Route: 015
     Dates: start: 20060105, end: 20060119
  2. SYNTHROID [Concomitant]

REACTIONS (3)
  - DYSGEUSIA [None]
  - HEADACHE [None]
  - PELVIC INFECTION [None]
